FAERS Safety Report 12390510 (Version 3)
Quarter: 2018Q4

REPORT INFORMATION
  Report Type: Spontaneous
  Country: US (occurrence: US)
  Receive Date: 20160520
  Receipt Date: 20181016
  Transmission Date: 20190204
  Serious: Yes (Other)
  Sender: FDA-Public Use
  Company Number: US-009507513-1605USA008936

PATIENT
  Sex: Female
  Weight: 71.2 kg

DRUGS (1)
  1. IMPLANON [Suspect]
     Active Substance: ETONOGESTREL
     Indication: CONTRACEPTION
     Dosage: 1 DF, UNK
     Route: 059
     Dates: start: 20120626, end: 20170518

REACTIONS (32)
  - Incorrect product administration duration [Recovered/Resolved]
  - Surgery [Recovered/Resolved]
  - Dysuria [Recovering/Resolving]
  - Ovarian cyst [Unknown]
  - Diabetic nephropathy [Unknown]
  - Diabetic gastroparesis [Unknown]
  - Complication associated with device [Recovered/Resolved]
  - Menstruation delayed [Unknown]
  - Haemangioma [Unknown]
  - Anion gap increased [Unknown]
  - Type 1 diabetes mellitus [Unknown]
  - Dehydration [Unknown]
  - Vitamin D deficiency [Unknown]
  - Diabetic ketoacidosis [Unknown]
  - Complication of device removal [Recovered/Resolved]
  - Bipolar I disorder [Unknown]
  - Ketonuria [Unknown]
  - Peripheral venous disease [Unknown]
  - Device dislocation [Recovered/Resolved]
  - Metabolic acidosis [Unknown]
  - Depression [Unknown]
  - Complication of device removal [Recovered/Resolved]
  - Bacterial vaginosis [Unknown]
  - Flank pain [Unknown]
  - Myalgia [Unknown]
  - Drug abuse [Recovered/Resolved]
  - Haematuria [Unknown]
  - Asthma [Unknown]
  - Diabetic neuropathy [Unknown]
  - Pulmonary mass [Unknown]
  - Tooth infection [Unknown]
  - Peripheral swelling [Unknown]

NARRATIVE: CASE EVENT DATE: 20120626
